FAERS Safety Report 6182811-8 (Version None)
Quarter: 2009Q2

REPORT INFORMATION
  Report Type: 
  Country: None (occurrence: None)
  Receive Date: 20090507
  Receipt Date: 20090428
  Transmission Date: 20091009
  Serious: Yes (Other)
  Sender: FDA-Public Use
  Company Number: US-JNJFOC-20090306665

PATIENT
  Sex: Female
  Weight: 68.49 kg

DRUGS (2)
  1. REMICADE [Suspect]
     Route: 042
  2. REMICADE [Suspect]
     Indication: RHEUMATOID ARTHRITIS
     Route: 042

REACTIONS (5)
  - CHEST DISCOMFORT [None]
  - HYPOAESTHESIA [None]
  - INFUSION RELATED REACTION [None]
  - KNEE OPERATION [None]
  - SENSATION OF HEAVINESS [None]
